FAERS Safety Report 21338193 (Version 2)
Quarter: 2022Q4

REPORT INFORMATION
  Report Type: Spontaneous
  Country: US (occurrence: US)
  Receive Date: 20220915
  Receipt Date: 20221214
  Transmission Date: 20230113
  Serious: No
  Sender: FDA-Public Use
  Company Number: US-BRISTOL-MYERS SQUIBB COMPANY-2022-106545

PATIENT
  Age: 67 Year
  Sex: Male

DRUGS (2)
  1. NIVOLUMAB [Suspect]
     Active Substance: NIVOLUMAB
     Indication: Hepatic cancer
     Route: 042
     Dates: start: 20220615, end: 202207
  2. YERVOY [Suspect]
     Active Substance: IPILIMUMAB
     Indication: Hepatic cancer
     Route: 042
     Dates: start: 20220615, end: 202207

REACTIONS (2)
  - Off label use [Unknown]
  - Aphasia [Unknown]
